FAERS Safety Report 4340468-2 (Version None)
Quarter: 2004Q2

REPORT INFORMATION
  Report Type: 
  Country: None (occurrence: None)
  Receive Date: 20040414
  Receipt Date: 20040402
  Transmission Date: 20050107
  Serious: Yes (Death, Hospitalization)
  Sender: FDA-Public Use
  Company Number: 200410099BSV

PATIENT
  Age: 38 Year
  Sex: Male

DRUGS (5)
  1. CIPROFLOXACIN [Suspect]
     Indication: PNEUMONIA
     Dosage: INTRAVENOUS
     Route: 042
     Dates: start: 20031221, end: 20031229
  2. CLARITHROMYCIN [Suspect]
     Indication: PNEUMONIA
     Dosage: INTRAVENOUS
     Route: 042
     Dates: start: 20031230, end: 20031231
  3. LIORESAL [Concomitant]
  4. MORFIN-SKOPOLAMIN [Concomitant]
  5. STESOLID [Concomitant]

REACTIONS (14)
  - ANURIA [None]
  - DEHYDRATION [None]
  - DRUG TOXICITY [None]
  - EPILEPSY [None]
  - GASTROINTESTINAL HAEMORRHAGE [None]
  - HEPATOTOXICITY [None]
  - HYPERHIDROSIS [None]
  - LOSS OF CONSCIOUSNESS [None]
  - MELAENA [None]
  - METABOLIC DISORDER [None]
  - PRODUCTIVE COUGH [None]
  - RESPIRATORY DISORDER [None]
  - SWELLING [None]
  - THROMBOCYTOPENIA [None]
